FAERS Safety Report 10687179 (Version 1)
Quarter: 2014Q4

REPORT INFORMATION
  Report Type: Spontaneous
  Country: US (occurrence: None)
  Receive Date: 20141230
  Receipt Date: 20141230
  Transmission Date: 20150529
  Serious: Yes (Hospitalization)
  Sender: FDA-Public Use
  Company Number: None

PATIENT
  Age: 90 Year
  Sex: Male
  Weight: 61.7 kg

DRUGS (1)
  1. SULFAMETHOXAZOLE/TRIMETHOPRIM [Suspect]
     Active Substance: SULFAMETHOXAZOLE\TRIMETHOPRIM
     Dosage: 2 TAB, BID, PO
     Route: 048
     Dates: start: 20141106, end: 20141110

REACTIONS (3)
  - Hyperkalaemia [None]
  - Hyponatraemia [None]
  - Hypovolaemia [None]

NARRATIVE: CASE EVENT DATE: 20141109
